FAERS Safety Report 11680182 (Version 2)
Quarter: 2015Q4

REPORT INFORMATION
  Report Type: Spontaneous
  Country: US (occurrence: US)
  Receive Date: 20151027
  Receipt Date: 20151104
  Transmission Date: 20160304
  Serious: No
  Sender: FDA-Public Use
  Company Number: US-ELI_LILLY_AND_COMPANY-US201010000495

PATIENT
  Age: 75 Year
  Sex: Female

DRUGS (8)
  1. REFRESH TEARS [Concomitant]
     Active Substance: CARBOXYMETHYLCELLULOSE SODIUM
     Dosage: UNK, 2/D
  2. FORTEO [Suspect]
     Active Substance: TERIPARATIDE
     Dosage: 20 UG, DAILY (1/D)
  3. FORTEO [Suspect]
     Active Substance: TERIPARATIDE
     Dosage: 20 UG, DAILY (1/D)
     Route: 065
  4. BABY ASPIRIN [Concomitant]
     Active Substance: ASPIRIN
     Dates: end: 20110113
  5. FORTEO [Suspect]
     Active Substance: TERIPARATIDE
     Indication: OSTEOPOROSIS
     Dosage: 20 UG, DAILY (1/D)
  6. ALEVE [Concomitant]
     Active Substance: NAPROXEN SODIUM
  7. IBUPROFEN. [Concomitant]
     Active Substance: IBUPROFEN
  8. LASIX [Concomitant]
     Active Substance: FUROSEMIDE
     Dosage: UNK, QOD

REACTIONS (6)
  - Injection site haemorrhage [Unknown]
  - Blood iron decreased [Unknown]
  - Diarrhoea [Unknown]
  - Anaemia [Unknown]
  - Full blood count decreased [Unknown]
  - Groin pain [Unknown]

NARRATIVE: CASE EVENT DATE: 20110113
